FAERS Safety Report 17121599 (Version 1)
Quarter: 2019Q4

REPORT INFORMATION
  Report Type: Report from Study
  Country: DE (occurrence: DE)
  Receive Date: 20191206
  Receipt Date: 20191206
  Transmission Date: 20200122
  Serious: Yes (Other)
  Sender: FDA-Public Use
  Company Number: PHHY2015DE006969

PATIENT
  Age: 35 Year
  Sex: Female

DRUGS (3)
  1. GILENYA [Suspect]
     Active Substance: FINGOLIMOD HYDROCHLORIDE
     Dosage: UNK
     Route: 048
     Dates: start: 20170714
  2. GILENYA [Suspect]
     Active Substance: FINGOLIMOD HYDROCHLORIDE
     Dosage: UNK, QD
     Route: 048
     Dates: start: 20160720, end: 20170704
  3. GILENYA [Suspect]
     Active Substance: FINGOLIMOD HYDROCHLORIDE
     Indication: MULTIPLE SCLEROSIS
     Dosage: UNK, QD
     Route: 048
     Dates: start: 20131211, end: 20160719

REACTIONS (17)
  - Lyme disease [Unknown]
  - Haemoglobin decreased [Unknown]
  - Restlessness [Recovered/Resolved]
  - Back pain [Not Recovered/Not Resolved]
  - Heat exhaustion [Unknown]
  - Loss of libido [Unknown]
  - Haematocrit decreased [Unknown]
  - Fatigue [Unknown]
  - Vitamin D deficiency [Unknown]
  - Muscle tightness [Unknown]
  - Helicobacter gastritis [Recovered/Resolved]
  - Cystitis [Recovered/Resolved]
  - Leukopenia [Recovered/Resolved]
  - Alanine aminotransferase increased [Recovered/Resolved]
  - Myalgia [Recovered/Resolved]
  - Iron deficiency anaemia [Unknown]
  - Lymphocyte count decreased [Unknown]

NARRATIVE: CASE EVENT DATE: 20140109
